FAERS Safety Report 16469023 (Version 2)
Quarter: 2019Q3

REPORT INFORMATION
  Report Type: Spontaneous
  Country: US (occurrence: US)
  Receive Date: 20190624
  Receipt Date: 20190919
  Transmission Date: 20191004
  Serious: Yes (Hospitalization)
  Sender: FDA-Public Use
  Company Number: US-PFIZER INC-2019266695

PATIENT
  Age: 90 Year
  Weight: 72.56 kg

DRUGS (7)
  1. PANTOPRAZOLE [Suspect]
     Active Substance: PANTOPRAZOLE
     Dosage: 40 MG, 1X/DAY
  2. TORSEMIDE. [Suspect]
     Active Substance: TORSEMIDE
     Dosage: UNK, 2X/DAY
  3. POTASSIUM CHLORIDE. [Concomitant]
     Active Substance: POTASSIUM CHLORIDE
     Dosage: 20 MEQ, 2X/DAY
  4. LYRICA [Suspect]
     Active Substance: PREGABALIN
     Indication: NEUROPATHY PERIPHERAL
  5. MEMANTINE. [Concomitant]
     Active Substance: MEMANTINE
     Dosage: UNK, 2X/DAY
  6. LYRICA [Suspect]
     Active Substance: PREGABALIN
     Indication: HERPES ZOSTER
     Dosage: 100 MG, 2X/DAY
     Dates: start: 200010
  7. HYDRALAZINE [Suspect]
     Active Substance: HYDRALAZINE HYDROCHLORIDE
     Dosage: 50 MG, 3X/DAY

REACTIONS (2)
  - Pain in extremity [Not Recovered/Not Resolved]
  - Limb discomfort [Unknown]
